FAERS Safety Report 4276399-6 (Version None)
Quarter: 2004Q1

REPORT INFORMATION
  Report Type: 
  Country: None (occurrence: None)
  Receive Date: 20040116
  Receipt Date: 20040112
  Transmission Date: 20041129
  Serious: Yes (Life-Threatening, Hospitalization, Other)
  Sender: FDA-Public Use
  Company Number: CA-JNJFOC-20031205638

PATIENT
  Age: 59 Year
  Sex: Female
  Weight: 100 kg

DRUGS (3)
  1. DOXORUBICIN HYDROCHLORIDE [Suspect]
     Indication: BREAST CANCER
     Dosage: 50 MG/M2, 1 IN 4 WEEK, INTRAVENOUS
     Route: 042
     Dates: start: 20030728, end: 20031124
  2. HERCEPTIN [Suspect]
     Indication: BREAST CANCER
     Dosage: 2 MG/KG, INTRANVENOUS
     Route: 042
     Dates: start: 20030729, end: 20031215
  3. NAVELBINE [Suspect]
     Dosage: INTRAVENOUS
     Route: 042
     Dates: start: 20031222, end: 20031222

REACTIONS (3)
  - CARDIAC ARREST [None]
  - PULMONARY OEDEMA [None]
  - SKIN TOXICITY [None]
